FAERS Safety Report 12450681 (Version 2)
Quarter: 2016Q2

REPORT INFORMATION
  Report Type: Report from Study
  Country: US (occurrence: US)
  Receive Date: 20160609
  Receipt Date: 20160613
  Transmission Date: 20160815
  Serious: No
  Sender: FDA-Public Use
  Company Number: US-BRISTOL-MYERS SQUIBB COMPANY-BMS-2016-044582

PATIENT
  Sex: Male
  Weight: 137 kg

DRUGS (1)
  1. ABATACEPT [Suspect]
     Active Substance: ABATACEPT
     Indication: RHEUMATOID ARTHRITIS
     Dosage: UNK
     Route: 058

REACTIONS (14)
  - Fatigue [Unknown]
  - Weight fluctuation [Unknown]
  - Movement disorder [Unknown]
  - Influenza [Unknown]
  - Pain [Unknown]
  - Mental disorder [Unknown]
  - Hypersomnia [Unknown]
  - Ocular icterus [Unknown]
  - Malaise [Unknown]
  - Drug ineffective [Unknown]
  - Headache [Unknown]
  - Needle issue [Unknown]
  - Feeling abnormal [Unknown]
  - Tremor [Unknown]
